FAERS Safety Report 25793721 (Version 2)
Quarter: 2025Q4

REPORT INFORMATION
  Report Type: Spontaneous
  Country: JP (occurrence: JP)
  Receive Date: 20250912
  Receipt Date: 20251029
  Transmission Date: 20260118
  Serious: Yes (Death)
  Sender: ALEXION PHARMACEUTICALS
  Company Number: JP-AstraZeneca-CH-00947434A

PATIENT
  Age: 40 Year
  Sex: Female
  Weight: 56.6 kg

DRUGS (3)
  1. IMFINZI [Suspect]
     Active Substance: DURVALUMAB
     Indication: Endometrial cancer
     Dosage: 1120 MILLIGRAM, Q3W
     Dates: start: 20241230, end: 20250520
  2. PACLITAXEL [Concomitant]
     Active Substance: PACLITAXEL
     Route: 065
  3. CARBOPLATIN [Concomitant]
     Active Substance: CARBOPLATIN
     Route: 065

REACTIONS (1)
  - Thrombosis [Fatal]

NARRATIVE: CASE EVENT DATE: 20250601
